FAERS Safety Report 15003479 (Version 2)
Quarter: 2018Q3

REPORT INFORMATION
  Report Type: Spontaneous
  Country: GB (occurrence: GB)
  Receive Date: 20180613
  Receipt Date: 20180726
  Transmission Date: 20181010
  Serious: Yes (Death, Other)
  Sender: FDA-Public Use
  Company Number: GB-TEVA-2018-GB-905847

PATIENT
  Age: 3 Week
  Sex: Male
  Weight: 3.7 kg

DRUGS (2)
  1. AMIODARONE [Suspect]
     Active Substance: AMIODARONE
     Indication: SUPRAVENTRICULAR TACHYCARDIA
     Dosage: 5MG/KG ?OVER 3 MINUTES
     Route: 042
     Dates: start: 20171203, end: 20171203
  2. ADENOSINE. [Concomitant]
     Active Substance: ADENOSINE
     Indication: SUPRAVENTRICULAR TACHYCARDIA
     Dosage: 100, 200, 300 AND 400 MCG/KG
     Route: 065

REACTIONS (3)
  - Incorrect drug administration duration [Fatal]
  - Product preparation error [Fatal]
  - Cardiac arrest [Fatal]
